FAERS Safety Report 4937501-3 (Version None)
Quarter: 2006Q1

REPORT INFORMATION
  Report Type: 
  Country: None (occurrence: None)
  Receive Date: 20060306
  Receipt Date: 20051220
  Transmission Date: 20060701
  Serious: Yes (Death)
  Sender: FDA-Public Use
  Company Number: COT_0402_2006

PATIENT
  Age: 50 Year
  Sex: Female
  Weight: 114.3 kg

DRUGS (14)
  1. VENTAVIS [Suspect]
     Indication: PULMONARY HYPERTENSION
     Dosage: 5 MCG 7XD IH
     Route: 055
     Dates: start: 20051208
  2. LEVOFLOXACIN [Concomitant]
  3. AMICAR [Concomitant]
  4. COLACE [Concomitant]
  5. PREMPRO [Concomitant]
  6. FOLATE [Concomitant]
  7. LASIX [Concomitant]
  8. MAG-OX [Concomitant]
  9. PROTONIX [Concomitant]
  10. POTASSIUM [Concomitant]
  11. ZOLOFT [Concomitant]
  12. SILDENAFIL [Concomitant]
  13. AMBIEN [Concomitant]
  14. OXYCODONE [Concomitant]

REACTIONS (10)
  - CARDIAC ARREST [None]
  - CONDITION AGGRAVATED [None]
  - CONVULSION [None]
  - DIZZINESS [None]
  - HEREDITARY HAEMORRHAGIC TELANGIECTASIA [None]
  - HYPOXIA [None]
  - NERVOUS SYSTEM DISORDER [None]
  - OEDEMA PERIPHERAL [None]
  - PULMONARY HYPERTENSION [None]
  - VENTRICULAR FIBRILLATION [None]
